FAERS Safety Report 19736868 (Version 1)
Quarter: 2021Q3

REPORT INFORMATION
  Report Type: Report from Study
  Country: CA (occurrence: CA)
  Receive Date: 20210823
  Receipt Date: 20210823
  Transmission Date: 20211014
  Serious: Yes (Hospitalization, Other)
  Sender: FDA-Public Use
  Company Number: CA-PFIZER INC-202101022383

PATIENT
  Age: 34 Year
  Sex: Female

DRUGS (22)
  1. OMALIZUMAB. [Suspect]
     Active Substance: OMALIZUMAB
     Dosage: 300 MG
     Route: 058
  2. OMALIZUMAB. [Suspect]
     Active Substance: OMALIZUMAB
     Dosage: UNK
     Route: 058
  3. OMEPRAZOLE. [Concomitant]
     Active Substance: OMEPRAZOLE
     Indication: GASTROOESOPHAGEAL REFLUX DISEASE
     Dosage: 1 DF, 2X/DAY
     Route: 048
  4. VORICONAZOLE. [Suspect]
     Active Substance: VORICONAZOLE
     Indication: ASPERGILLUS INFECTION
  5. OMALIZUMAB. [Suspect]
     Active Substance: OMALIZUMAB
     Dosage: 300 MG
     Route: 058
  6. OMALIZUMAB. [Suspect]
     Active Substance: OMALIZUMAB
     Dosage: 300 MG
     Route: 058
  7. URSODIOL. [Concomitant]
     Active Substance: URSODIOL
     Indication: HEPATIC CIRRHOSIS
     Dosage: 1 DF, 2X/DAY
     Route: 048
  8. VORICONAZOLE. [Suspect]
     Active Substance: VORICONAZOLE
     Indication: LUNG DISORDER
     Dosage: 200 MG, 2X/DAY
     Route: 065
  9. OMALIZUMAB. [Suspect]
     Active Substance: OMALIZUMAB
     Dosage: 300 MG
     Route: 058
  10. OMALIZUMAB. [Suspect]
     Active Substance: OMALIZUMAB
     Indication: ASTHMA
     Dosage: 300 MG
     Route: 058
  11. OMALIZUMAB. [Suspect]
     Active Substance: OMALIZUMAB
     Dosage: UNK
     Route: 058
  12. OMALIZUMAB. [Suspect]
     Active Substance: OMALIZUMAB
     Dosage: UNK
     Route: 058
  13. OMALIZUMAB. [Suspect]
     Active Substance: OMALIZUMAB
     Dosage: 300 MG
     Route: 058
  14. OMALIZUMAB. [Suspect]
     Active Substance: OMALIZUMAB
     Dosage: 300 MG
     Route: 058
  15. VENTOLIN [Concomitant]
     Active Substance: ALBUTEROL SULFATE
     Indication: ASTHMA
     Dosage: 2 DF, 2X/DAY
     Route: 055
  16. OMALIZUMAB. [Suspect]
     Active Substance: OMALIZUMAB
     Indication: LUNG DISORDER
     Dosage: 300 MG
     Route: 058
  17. OMALIZUMAB. [Suspect]
     Active Substance: OMALIZUMAB
     Dosage: 300 MG
     Route: 058
  18. OMALIZUMAB. [Suspect]
     Active Substance: OMALIZUMAB
     Dosage: 300 MG
     Route: 058
  19. OMALIZUMAB. [Suspect]
     Active Substance: OMALIZUMAB
     Indication: ASTHMA
  20. PULMICORT TURBUHALER [Concomitant]
     Active Substance: BUDESONIDE
     Indication: ASTHMA
     Dosage: 4 DF, 2X/DAY
     Route: 055
  21. BUDESONIDE/FORMOTEROL FUMARATE [Concomitant]
     Active Substance: BUDESONIDE\FORMOTEROL FUMARATE
     Indication: ASTHMA
     Dosage: 3 DF, 2X/DAY
     Route: 055
  22. OMALIZUMAB. [Suspect]
     Active Substance: OMALIZUMAB
     Indication: LUNG DISORDER
     Dosage: 300 MG
     Route: 058

REACTIONS (18)
  - Cystic fibrosis [Not Recovered/Not Resolved]
  - Forced expiratory volume decreased [Not Recovered/Not Resolved]
  - Mycobacterium abscessus infection [Not Recovered/Not Resolved]
  - Nephrolithiasis [Not Recovered/Not Resolved]
  - Aphonia [Not Recovered/Not Resolved]
  - Aspergillus infection [Not Recovered/Not Resolved]
  - Asthma [Not Recovered/Not Resolved]
  - Gastrointestinal polyp [Not Recovered/Not Resolved]
  - Pneumonia [Not Recovered/Not Resolved]
  - Product dose omission issue [Not Recovered/Not Resolved]
  - Pseudomonas test positive [Not Recovered/Not Resolved]
  - Cough [Not Recovered/Not Resolved]
  - Bone pain [Not Recovered/Not Resolved]
  - Mass [Not Recovered/Not Resolved]
  - Vomiting [Not Recovered/Not Resolved]
  - Heart rate increased [Not Recovered/Not Resolved]
  - Malaise [Not Recovered/Not Resolved]
  - Pulmonary function test decreased [Not Recovered/Not Resolved]
